FAERS Safety Report 4987569-3 (Version None)
Quarter: 2006Q2

REPORT INFORMATION
  Report Type: 
  Country: None (occurrence: None)
  Receive Date: 20060427
  Receipt Date: 20060427
  Transmission Date: 20061013
  Serious: Yes (Other)
  Sender: FDA-Public Use
  Company Number: None

PATIENT
  Sex: Female
  Weight: 72.1219 kg

DRUGS (3)
  1. FOSAMAX [Suspect]
     Indication: OSTEOPOROSIS
     Dosage: 70 MG, ONCE WEEKLY PO
     Route: 048
     Dates: start: 19960101, end: 20051201
  2. EVISTA [Concomitant]
  3. CELEBREX [Concomitant]

REACTIONS (1)
  - OSTEONECROSIS [None]
